FAERS Safety Report 5627092-6 (Version None)
Quarter: 2008Q1

REPORT INFORMATION
  Report Type: 
  Country: None (occurrence: None)
  Receive Date: 20080118
  Receipt Date: 20071029
  Transmission Date: 20080703
  Serious: Yes (Life-Threatening, Hospitalization)
  Sender: FDA-Public Use
  Company Number: 2007-BP-17399BP

PATIENT
  Sex: Male

DRUGS (8)
  1. APTIVUS [Suspect]
     Indication: HIV INFECTION
     Dosage: SEE TEXT (SEE TEXT,TPV/R 250/100 MG, 2 PO BID)
     Dates: start: 20060301, end: 20070626
  2. FUZEON [Concomitant]
  3. TRUVADA (EMTRICITABINE) [Concomitant]
  4. SUSTIVA [Concomitant]
  5. ATRIPLA (ALL OTHER THERAPEUTIC PRODUCTS) [Concomitant]
  6. LEXAPRO [Concomitant]
  7. AZITHROMYCIN [Concomitant]
  8. TMP-SMZ (BACTRIM /00086101/) [Concomitant]

REACTIONS (2)
  - APHASIA [None]
  - HAEMORRHAGE INTRACRANIAL [None]
